FAERS Safety Report 8335384-5 (Version None)
Quarter: 2012Q2

REPORT INFORMATION
  Report Type: 
  Country: None (occurrence: None)
  Receive Date: 20120503
  Receipt Date: 20120426
  Transmission Date: 20120825
  Serious: Yes (Hospitalization, Disabling, Other)
  Sender: FDA-Public Use
  Company Number: US-MERCK-1103USA00978

PATIENT
  Age: 53 Year
  Sex: Female
  Weight: 60 kg

DRUGS (9)
  1. FOSAMAX PLUS D [Suspect]
     Indication: OSTEOPOROSIS
     Route: 048
     Dates: start: 20071011, end: 20081001
  2. CORTICOSTEROIDS (UNSPECIFIED) [Concomitant]
     Route: 065
     Dates: start: 19960101, end: 20060101
  3. CALCIUM (UNSPECIFIED) [Concomitant]
     Indication: OSTEOPOROSIS
     Route: 065
     Dates: start: 20030101
  4. FOSAMAX [Suspect]
     Indication: OSTEOPOROSIS
     Route: 048
     Dates: start: 20000101, end: 20070901
  5. ALENDRONATE SODIUM [Suspect]
     Route: 048
     Dates: start: 20080101
  6. VITAMIN D (UNSPECIFIED) [Concomitant]
     Indication: OSTEOPOROSIS
     Route: 065
     Dates: start: 20100101
  7. ALENDRONATE SODIUM [Suspect]
     Indication: OSTEOPOROSIS
     Route: 048
     Dates: start: 20080101, end: 20091101
  8. HORMONES (UNSPECIFIED) [Concomitant]
     Route: 065
     Dates: start: 19860101
  9. FOSAMAX [Suspect]
     Indication: OSTEOPENIA
     Route: 048
     Dates: start: 20000101, end: 20070901

REACTIONS (52)
  - ELECTROLYTE IMBALANCE [None]
  - RESPIRATORY DISTRESS [None]
  - ANTINUCLEAR ANTIBODY INCREASED [None]
  - HYPERHIDROSIS [None]
  - BALANCE DISORDER [None]
  - LOOSE TOOTH [None]
  - HYPERLIPIDAEMIA [None]
  - CERVICOBRACHIAL SYNDROME [None]
  - CONVULSION [None]
  - TOBACCO ABUSE [None]
  - STRESS FRACTURE [None]
  - COUGH [None]
  - VITAMIN D DEFICIENCY [None]
  - PARAESTHESIA [None]
  - SEDATION [None]
  - HAEMORRHAGIC ANAEMIA [None]
  - URINARY TRACT INFECTION [None]
  - RENAL FAILURE ACUTE [None]
  - PNEUMONIA [None]
  - LOW TURNOVER OSTEOPATHY [None]
  - ADVERSE DRUG REACTION [None]
  - BLOOD CHOLESTEROL INCREASED [None]
  - PALPITATIONS [None]
  - CERVICAL MYELOPATHY [None]
  - OSTEOPOROSIS [None]
  - VITAMIN B12 DECREASED [None]
  - PAIN IN EXTREMITY [None]
  - OSTEOARTHRITIS [None]
  - OEDEMA PERIPHERAL [None]
  - ARTHROPATHY [None]
  - DEPRESSION [None]
  - SPINAL OSTEOARTHRITIS [None]
  - CHRONIC OBSTRUCTIVE PULMONARY DISEASE [None]
  - FALL [None]
  - NECK PAIN [None]
  - GROIN PAIN [None]
  - FIBROCYSTIC BREAST DISEASE [None]
  - ALCOHOL ABUSE [None]
  - BREAST HAEMATOMA [None]
  - JOINT EFFUSION [None]
  - RAYNAUD'S PHENOMENON [None]
  - CONSTIPATION [None]
  - FEMUR FRACTURE [None]
  - ENCEPHALOPATHY [None]
  - FRACTURE [None]
  - FRACTURE NONUNION [None]
  - JOINT SWELLING [None]
  - HYPOAESTHESIA [None]
  - WRIST FRACTURE [None]
  - NEUROPATHY PERIPHERAL [None]
  - TOOTH DISORDER [None]
  - GINGIVAL DISORDER [None]
